FAERS Safety Report 24690755 (Version 3)
Quarter: 2025Q2

REPORT INFORMATION
  Report Type: Spontaneous
  Country: US (occurrence: US)
  Receive Date: 20241203
  Receipt Date: 20250606
  Transmission Date: 20250717
  Serious: No
  Sender: NOVEN
  Company Number: US-NOVEN PHARMACEUTICALS, INC.-2023-NOV-US001315

PATIENT
  Age: 54 Year
  Sex: Female

DRUGS (1)
  1. ESTRADIOL [Suspect]
     Active Substance: ESTRADIOL
     Indication: Product used for unknown indication
     Dosage: 0.05 MG, TWICE A WEEK (ON MONDAYS AND THURSDAYS)
     Route: 062

REACTIONS (2)
  - Incorrect product administration duration [Recovered/Resolved]
  - No adverse event [Unknown]

NARRATIVE: CASE EVENT DATE: 20231204
